FAERS Safety Report 11273580 (Version 1)
Quarter: 2015Q3

REPORT INFORMATION
  Report Type: Spontaneous
  Country: US (occurrence: None)
  Receive Date: 20150714
  Receipt Date: 20150714
  Transmission Date: 20151125
  Serious: Yes (Other)
  Sender: FDA-Public Use
  Company Number: None

PATIENT
  Age: 45 Year
  Sex: Male

DRUGS (2)
  1. SUTENT [Suspect]
     Active Substance: SUNITINIB MALATE
     Indication: BONE CANCER
     Dosage: 37.5MG, QD, PO
     Route: 048
     Dates: start: 20150611, end: 20150713
  2. SUTENT [Suspect]
     Active Substance: SUNITINIB MALATE
     Indication: PROSTATE CANCER
     Dosage: 37.5MG, QD, PO
     Route: 048
     Dates: start: 20150611, end: 20150713

REACTIONS (1)
  - Blood count abnormal [None]

NARRATIVE: CASE EVENT DATE: 20150713
